FAERS Safety Report 16612728 (Version 1)
Quarter: 2019Q3

REPORT INFORMATION
  Report Type: Spontaneous
  Country: DE (occurrence: DE)
  Receive Date: 20190722
  Receipt Date: 20190722
  Transmission Date: 20191004
  Serious: Yes (Other)
  Sender: FDA-Public Use
  Company Number: PHHY2019DE164374

PATIENT
  Age: 1 Day
  Sex: Female
  Weight: 2.57 kg

DRUGS (8)
  1. FRAXIPARIN [Concomitant]
     Active Substance: NADROPARIN CALCIUM
     Indication: FOETAL EXPOSURE DURING PREGNANCY
     Dosage: MATERNAL DOSE: 3800 IU, QD (0-12 GESTATIONAL WEEK)
     Route: 064
  2. L-THYROXINE [Concomitant]
     Active Substance: LEVOTHYROXINE
     Indication: FOETAL EXPOSURE DURING PREGNANCY
     Dosage: MATERNAL DOSE: 62.5 UG, QD (0- 39.3 GESTATIONAL WEEK)
     Route: 064
     Dates: start: 20180215, end: 20181118
  3. VENLAFAXIN [Concomitant]
     Active Substance: VENLAFAXINE HYDROCHLORIDE
     Indication: FOETAL EXPOSURE DURING PREGNANCY
     Dosage: MATERNAL DOSE: 300 MG, QD (0- 39.3 GESTATIONAL WEEK)
     Route: 064
     Dates: start: 20180215, end: 20181118
  4. PREDNISOLON [Suspect]
     Active Substance: PREDNISOLONE
     Indication: FOETAL EXPOSURE DURING PREGNANCY
     Dosage: MATERNAL DOSE: 5 MG, QD (0. - 39.3. GESTATIONAL WEEK)
     Route: 064
     Dates: start: 20180215, end: 20181118
  5. FOLSAN [Concomitant]
     Active Substance: FOLIC ACID
     Indication: FOETAL EXPOSURE DURING PREGNANCY
     Dosage: UNK (0- 39.3 GESTATIONAL WEEK)
     Route: 064
  6. ASPIRIN. [Concomitant]
     Active Substance: ASPIRIN
     Indication: FOETAL EXPOSURE DURING PREGNANCY
     Dosage: MATERNAL DOSE: 100 MG, QD (0- 39.3 GESTATIONAL WEEK)
     Route: 064
  7. METOHEXAL SUCC [Suspect]
     Active Substance: METOPROLOL SUCCINATE
     Indication: FOETAL EXPOSURE DURING PREGNANCY
     Dosage: MATERNAL DOSE: 95 MG, QD (0- 39.3 GESTATIONAL WEEK)
     Route: 064
     Dates: start: 20180215, end: 20181118
  8. QUETIAPIN [Concomitant]
     Active Substance: QUETIAPINE
     Indication: FOETAL EXPOSURE DURING PREGNANCY
     Dosage: MATERNAL DOSE: 150 MG, QD (0- 39.3 GESTATIONAL WEEK)
     Route: 064
     Dates: start: 20180215, end: 20181118

REACTIONS (2)
  - Foetal exposure during pregnancy [Recovering/Resolving]
  - Small for dates baby [Recovering/Resolving]

NARRATIVE: CASE EVENT DATE: 20181118
